FAERS Safety Report 5297731-0 (Version None)
Quarter: 2007Q2

REPORT INFORMATION
  Report Type: 
  Country: None (occurrence: None)
  Receive Date: 20070406
  Receipt Date: 20070319
  Transmission Date: 20071010
  Serious: Yes (Hospitalization)
  Sender: FDA-Public Use
  Company Number: 6031259

PATIENT
  Age: 31 Year
  Sex: Male

DRUGS (8)
  1. AZATHIOPRINE [Suspect]
     Indication: COLITIS ULCERATIVE
     Dates: start: 20050101, end: 20050101
  2. AZATHIOPRINE [Suspect]
     Indication: COLITIS ULCERATIVE
     Dates: start: 20050601, end: 20050701
  3. INFLIXIMAB (INTRAVENOUS INFUSION) (INFLIXIMAB) [Suspect]
     Indication: COLITIS ULCERATIVE
     Dosage: 5 MG/KG (5 MG/KG, 1 IN 2 WK) INTRAVENOUS (NOT OTHERWISE SPECIFIED)
     Route: 042
     Dates: start: 20050701
  4. PREDNISOLONE [Suspect]
     Indication: COLITIS ULCERATIVE
     Dates: start: 20020101, end: 20050601
  5. PREDNISOLONE [Suspect]
     Indication: COLITIS ULCERATIVE
     Dates: start: 20050701
  6. CYCLOSPORINE [Suspect]
     Indication: COLITIS ULCERATIVE
     Dates: start: 20050201, end: 20050601
  7. HYDROXYZINE [Suspect]
     Indication: COLITIS ULCERATIVE
     Dates: start: 20050701
  8. MERCAPTOPURINE [Suspect]
     Indication: COLITIS ULCERATIVE
     Dates: start: 20050801

REACTIONS (14)
  - BIOPSY LIVER ABNORMAL [None]
  - CELL DEATH [None]
  - CHOLESTASIS [None]
  - CHORIOMENINGITIS LYMPHOCYTIC [None]
  - COLITIS ULCERATIVE [None]
  - DYSPNOEA [None]
  - EXTENSOR PLANTAR RESPONSE [None]
  - HEPATIC STEATOSIS [None]
  - HEPATITIS CHOLESTATIC [None]
  - MALAISE [None]
  - NAUSEA [None]
  - PYREXIA [None]
  - RASH [None]
  - URINARY RETENTION [None]
